FAERS Safety Report 21707924 (Version 2)
Quarter: 2022Q4

REPORT INFORMATION
  Report Type: Spontaneous
  Country: ES (occurrence: ES)
  Receive Date: 20221209
  Receipt Date: 20221219
  Transmission Date: 20230113
  Serious: Yes (Hospitalization, Other)
  Sender: FDA-Public Use
  Company Number: ES-002147023-NVSC2022ES265695

PATIENT
  Sex: Male
  Weight: 1.9 kg

DRUGS (9)
  1. CLINDAMYCIN PHOSPHATE [Suspect]
     Active Substance: CLINDAMYCIN PHOSPHATE
     Indication: Antibiotic prophylaxis
     Dosage: 600 MG (30 MINUTES BEFORE THE CESAREAN SECTION)
     Route: 064
  2. ATENOLOL [Suspect]
     Active Substance: ATENOLOL
     Indication: Ventricular tachycardia
     Dosage: UNK
     Route: 064
  3. BETAMETHASONE [Suspect]
     Active Substance: BETAMETHASONE
     Indication: Maternal therapy to enhance foetal lung maturity
     Dosage: ONCE, SINGLE
     Route: 064
  4. BUPIVACAINE [Suspect]
     Active Substance: BUPIVACAINE
     Indication: Anaesthesia
     Dosage: 1.2 ML
     Route: 064
  5. FLECAINIDE [Suspect]
     Active Substance: FLECAINIDE
     Indication: Shock
     Dosage: 50 MG, 2X/DAY
     Route: 064
  6. GENTAMICIN [Suspect]
     Active Substance: GENTAMICIN
     Indication: Antibiotic prophylaxis
     Dosage: 120 MG (30 MINUTES BEFORE THE CESAREAN SECTION)
     Route: 064
  7. LIDOCAINE [Suspect]
     Active Substance: LIDOCAINE
     Indication: Anaesthesia
     Dosage: 4 ML
     Route: 064
  8. METOPROLOL [Suspect]
     Active Substance: METOPROLOL
     Indication: Ventricular tachycardia
     Dosage: 50 MG, 2X/DAY
     Route: 064
  9. PROGESTERONE [Suspect]
     Active Substance: PROGESTERONE
     Indication: Shortened cervix
     Dosage: 200 MG, QD
     Route: 064

REACTIONS (4)
  - Premature baby [Unknown]
  - Neonatal respiratory distress syndrome [Recovered/Resolved]
  - Low birth weight baby [Unknown]
  - Foetal exposure during pregnancy [Unknown]
